FAERS Safety Report 18445906 (Version 1)
Quarter: 2020Q4

REPORT INFORMATION
  Report Type: Spontaneous
  Country: DE (occurrence: DE)
  Receive Date: 20201030
  Receipt Date: 20201030
  Transmission Date: 20210114
  Serious: Yes (Life-Threatening, Hospitalization, Disabling)
  Sender: FDA-Public Use
  Company Number: DE-TEVA-2020-DE-1839525

PATIENT
  Age: 66 Year
  Sex: Female
  Weight: 74 kg

DRUGS (12)
  1. PANTOZOL [Suspect]
     Active Substance: PANTOPRAZOLE SODIUM
  2. INSULIN [Concomitant]
     Active Substance: INSULIN NOS
  3. CLOPIDOGREL [Suspect]
     Active Substance: CLOPIDOGREL BISULFATE
     Indication: CEREBROVASCULAR ACCIDENT PROPHYLAXIS
  4. ESIDRIX [Suspect]
     Active Substance: HYDROCHLOROTHIAZIDE
     Indication: CARDIAC FAILURE
  5. CIPRAMIL [CITALOPRAM HYDROCHLORIDE] [Suspect]
     Active Substance: CITALOPRAM HYDROCHLORIDE
  6. LOCOL (FLUVASTATIN SODIUM) [Suspect]
     Active Substance: FLUVASTATIN SODIUM
     Indication: DYSLIPIDAEMIA
     Dosage: 80 MILLIGRAM DAILY;
     Route: 042
     Dates: start: 20190430, end: 20190520
  7. NORVASC [Suspect]
     Active Substance: AMLODIPINE BESYLATE
  8. HALOPERIDOL. [Suspect]
     Active Substance: HALOPERIDOL
     Indication: SCHIZOAFFECTIVE DISORDER
     Dosage: 4 MILLIGRAM DAILY;
     Route: 042
     Dates: start: 20190430, end: 20190518
  9. CONCOR [Suspect]
     Active Substance: BISOPROLOL FUMARATE
  10. CLONIDINE. [Suspect]
     Active Substance: CLONIDINE
     Indication: HYPERTENSION
     Route: 042
     Dates: start: 20190430, end: 20190520
  11. DIPIDOLOR [Suspect]
     Active Substance: PIRITRAMIDE
     Indication: PROCEDURAL PAIN
     Route: 042
  12. AKINETON [Suspect]
     Active Substance: BIPERIDEN HYDROCHLORIDE

REACTIONS (9)
  - Restlessness [Recovered/Resolved]
  - Pyrexia [Recovered/Resolved]
  - Coma [Recovered/Resolved]
  - Monoparesis [Not Recovered/Not Resolved]
  - Neuroleptic malignant syndrome [Recovering/Resolving]
  - Pneumonia [Recovering/Resolving]
  - Blood creatine phosphokinase increased [Recovered/Resolved]
  - Hypernatraemia [Recovered/Resolved]
  - Anaemia [Recovering/Resolving]

NARRATIVE: CASE EVENT DATE: 2019
